FAERS Safety Report 5837296-5 (Version None)
Quarter: 2008Q3

REPORT INFORMATION
  Report Type: 
  Country: None (occurrence: None)
  Receive Date: 20080807
  Receipt Date: 20080729
  Transmission Date: 20090109
  Serious: Yes (Other)
  Sender: FDA-Public Use
  Company Number: US-ELI_LILLY_AND_COMPANY-US200807006057

PATIENT
  Sex: Male

DRUGS (1)
  1. HUMALOG [Suspect]
     Dosage: UNK, UNK
     Route: 058
     Dates: start: 20010101

REACTIONS (4)
  - BLOOD CREATININE INCREASED [None]
  - RENAL DISORDER [None]
  - RENAL IMPAIRMENT [None]
  - VISION BLURRED [None]
